FAERS Safety Report 9361033 (Version 1)
Quarter: 2013Q2

REPORT INFORMATION
  Report Type: Spontaneous
  Country: US (occurrence: None)
  Receive Date: 20130620
  Receipt Date: 20130620
  Transmission Date: 20140414
  Serious: Yes (Other)
  Sender: FDA-Public Use
  Company Number: None

PATIENT
  Sex: Female
  Weight: 78.47 kg

DRUGS (2)
  1. SMZ/TMP DS 800-160 TABS INTERPHARM [Suspect]
     Indication: EAR INFECTION
     Dates: start: 20130607
  2. AMOXICILLIN [Suspect]
     Indication: EAR INFECTION
     Dates: start: 20130608

REACTIONS (4)
  - Lip swelling [None]
  - Diarrhoea [None]
  - Abdominal pain upper [None]
  - Nausea [None]
